FAERS Safety Report 9243306 (Version 1)
Quarter: 2013Q2

REPORT INFORMATION
  Report Type: Spontaneous
  Country: US (occurrence: US)
  Receive Date: 20130419
  Receipt Date: 20130419
  Transmission Date: 20140414
  Serious: No
  Sender: FDA-Public Use
  Company Number: US-009507513-1304USA008437

PATIENT
  Sex: Male

DRUGS (1)
  1. INTRONA [Suspect]
     Dosage: UNK

REACTIONS (3)
  - Headache [Unknown]
  - Fatigue [Unknown]
  - Rash [Unknown]
